FAERS Safety Report 20039064 (Version 2)
Quarter: 2021Q4

REPORT INFORMATION
  Report Type: Spontaneous
  Country: JP (occurrence: JP)
  Receive Date: 20211105
  Receipt Date: 20211129
  Transmission Date: 20220303
  Serious: Yes (Other)
  Sender: FDA-Public Use
  Company Number: JP-PFIZER INC-202101464572

PATIENT
  Age: 45 Year
  Sex: Male

DRUGS (4)
  1. SOLANAX [Suspect]
     Active Substance: ALPRAZOLAM
     Indication: Anxiety
     Dosage: 0.5 TABLET, 1X/DAY (AFTER SUPPER)
     Route: 048
     Dates: start: 20190225
  2. SOLANAX [Suspect]
     Active Substance: ALPRAZOLAM
     Dosage: 0.5 TABLET, AS NEEDED (WHEN FEELING ANXIETY)
     Route: 048
     Dates: start: 20190225
  3. PROPYLTHIOURACIL [Suspect]
     Active Substance: PROPYLTHIOURACIL
     Dosage: 50 MG, 1X/DAY
     Route: 048
     Dates: start: 20201001
  4. LEXAPRO [Suspect]
     Active Substance: ESCITALOPRAM OXALATE
     Dosage: 10 MG, 1X/DAY
     Route: 048
     Dates: start: 20190214

REACTIONS (2)
  - Blood creatine phosphokinase increased [Unknown]
  - Off label use [Unknown]

NARRATIVE: CASE EVENT DATE: 20211028
